FAERS Safety Report 15271327 (Version 1)
Quarter: 2018Q3

REPORT INFORMATION
  Report Type: Spontaneous
  Country: US (occurrence: US)
  Receive Date: 20180813
  Receipt Date: 20180813
  Transmission Date: 20181010
  Serious: Yes (Life-Threatening, Hospitalization, Other)
  Sender: FDA-Public Use
  Company Number: US-IBIGEN-2018.04644

PATIENT
  Age: 20 Year
  Sex: Male

DRUGS (1)
  1. UNK [Suspect]
     Active Substance: UNSPECIFIED INGREDIENT
     Indication: EVIDENCE BASED TREATMENT

REACTIONS (5)
  - Thrombocytopenia [Recovering/Resolving]
  - Wound haemorrhage [Unknown]
  - Haemoptysis [Unknown]
  - Respiratory failure [Unknown]
  - Drug administration error [Unknown]
